FAERS Safety Report 19521132 (Version 1)
Quarter: 2021Q3

REPORT INFORMATION
  Report Type: Spontaneous
  Country: US (occurrence: US)
  Receive Date: 20210712
  Receipt Date: 20210712
  Transmission Date: 20211014
  Serious: No
  Sender: FDA-Public Use
  Company Number: US-JNJFOC-20210718607

PATIENT
  Age: 25 Year
  Sex: Female

DRUGS (3)
  1. HALDOL [Suspect]
     Active Substance: HALOPERIDOL
     Indication: ANXIETY
  2. HALDOL [Suspect]
     Active Substance: HALOPERIDOL
     Indication: INSOMNIA
  3. HALDOL [Suspect]
     Active Substance: HALOPERIDOL
     Indication: TREMOR
     Route: 065

REACTIONS (3)
  - Product use in unapproved indication [Unknown]
  - Insomnia [Unknown]
  - Off label use [Unknown]

NARRATIVE: CASE EVENT DATE: 2021
